FAERS Safety Report 18241481 (Version 3)
Quarter: 2020Q4

REPORT INFORMATION
  Report Type: Spontaneous
  Country: IT (occurrence: IT)
  Receive Date: 20200908
  Receipt Date: 20201130
  Transmission Date: 20210113
  Serious: Yes (Other)
  Sender: FDA-Public Use
  Company Number: IT-MYLANLABS-2020M1076978

PATIENT
  Age: 39 Year
  Sex: Male

DRUGS (2)
  1. DICLOFENAC [Suspect]
     Active Substance: DICLOFENAC
     Indication: SCIATICA
     Dosage: 75 MILLIGRAM, QD
     Route: 030
     Dates: start: 20200729, end: 20200730
  2. MUSCORIL [Concomitant]
     Active Substance: THIOCOLCHICOSIDE
     Dosage: UNK

REACTIONS (3)
  - Laryngeal oedema [Unknown]
  - Urticaria [Unknown]
  - Angioedema [Unknown]

NARRATIVE: CASE EVENT DATE: 20200730
